FAERS Safety Report 5062327-2 (Version None)
Quarter: 2006Q3

REPORT INFORMATION
  Report Type: 
  Country: None (occurrence: None)
  Receive Date: 20060721
  Receipt Date: 20060710
  Transmission Date: 20061208
  Serious: Yes (Disabling)
  Sender: FDA-Public Use
  Company Number: 2006086330

PATIENT
  Age: 69 Year
  Sex: Male
  Weight: 70 kg

DRUGS (2)
  1. DOSTINEX [Suspect]
     Indication: PROLACTINOMA
     Dosage: (0.25 MG, 2 IN 1 WK), ORAL
     Route: 048
     Dates: start: 20011201
  2. BROMOCRIPTINE MESYLATE [Suspect]
     Indication: PROLACTINOMA
     Dosage: 5 MG (UNKNOWN), ORAL
     Route: 048
     Dates: start: 19930101

REACTIONS (1)
  - POLYNEUROPATHY [None]
